FAERS Safety Report 4664283-5 (Version None)
Quarter: 2005Q2

REPORT INFORMATION
  Report Type: 
  Country: None (occurrence: None)
  Receive Date: 20050516
  Receipt Date: 20050511
  Transmission Date: 20051028
  Serious: Yes (Death)
  Sender: FDA-Public Use
  Company Number: ENTC2005-0128

PATIENT
  Age: 65 Year
  Sex: Male

DRUGS (2)
  1. STALEVO 100 [Suspect]
     Indication: PARKINSON'S DISEASE
     Dosage: ORAL
     Route: 048
  2. REQUIP [Concomitant]

REACTIONS (5)
  - CARDIAC DISORDER [None]
  - CONDITION AGGRAVATED [None]
  - DYSPHAGIA [None]
  - MUSCLE SPASMS [None]
  - RESPIRATORY DISORDER [None]
